FAERS Safety Report 25970851 (Version 2)
Quarter: 2025Q4

REPORT INFORMATION
  Report Type: Report from Study
  Country: GB (occurrence: GB)
  Receive Date: 20251028
  Receipt Date: 20251224
  Transmission Date: 20260118
  Serious: Yes (Hospitalization, Disabling)
  Sender: IPSEN BIOPHARMACEUTICALS, INC.
  Company Number: GB-IPSEN Group, Research and Development-2022-32368

PATIENT
  Age: 79 Year
  Sex: Male

DRUGS (3)
  1. LANREOTIDE ACETATE [Suspect]
     Active Substance: LANREOTIDE ACETATE
     Indication: Neuroendocrine tumour
     Dosage: 120MG/0.5ML
     Route: 058
  2. LANREOTIDE ACETATE [Suspect]
     Active Substance: LANREOTIDE ACETATE
     Dosage: LANREOTIDE IPSEN 120MG/0.5ML SOLUTION FOR INJECTION PRE-FILLED SYRINGES
     Route: 058
  3. LANREOTIDE ACETATE [Suspect]
     Active Substance: LANREOTIDE ACETATE
     Dosage: LANREOTIDE IPSEN 120MG/0.5ML SOLUTION FOR INJECTION PRE-FILLED SYRINGES
     Route: 058
     Dates: start: 20251219

REACTIONS (8)
  - Abdominal pain [Not Recovered/Not Resolved]
  - Lymphadenopathy [Not Recovered/Not Resolved]
  - Cholelithiasis [Recovering/Resolving]
  - Hospitalisation [Unknown]
  - Headache [Unknown]
  - Back pain [Unknown]
  - Malaise [Not Recovered/Not Resolved]
  - Off label use [Unknown]

NARRATIVE: CASE EVENT DATE: 20251001
